FAERS Safety Report 7201250-1 (Version None)
Quarter: 2010Q4

REPORT INFORMATION
  Report Type: 
  Country: None (occurrence: None)
  Receive Date: 20101229
  Receipt Date: 20101222
  Transmission Date: 20110411
  Serious: Yes (Death, Hospitalization, Other)
  Sender: FDA-Public Use
  Company Number: PHHY2010US86079

PATIENT
  Age: 23 Year
  Sex: Female
  Weight: 60 kg

DRUGS (11)
  1. VALPROIC ACID [Suspect]
     Indication: CONVULSION
     Dosage: 250 MG AND 125 MG DAILY
  2. VALPROIC ACID [Suspect]
     Dosage: 10 MG/KG/DAY
  3. LAMOTRIGINE [Concomitant]
     Dosage: 250 MG DAILY
  4. LAMOTRIGINE [Concomitant]
     Dosage: 100 MG
  5. LEVETIRACETAM [Concomitant]
     Dosage: 1500 MG 8 HOURLY
  6. LEVETIRACETAM [Concomitant]
     Dosage: 750 MG
  7. AMIODARONE [Concomitant]
     Dosage: 0.5 MG/MIN / 2 ?G/KG
  8. FENTANYL-100 [Concomitant]
     Dosage: UNK
  9. ETOMIDATE [Concomitant]
     Dosage: 0.2 MG/KG
  10. CISATRACURIUM [Concomitant]
     Dosage: 0.1 MG/KG
  11. CISATRACURIUM [Concomitant]
     Dosage: 0.08 ?G/KG/MIN),

REACTIONS (20)
  - ACUTE HEPATIC FAILURE [None]
  - CARDIAC ARREST [None]
  - CARDIAC FAILURE ACUTE [None]
  - DIALYSIS [None]
  - DISEASE PROGRESSION [None]
  - ENDOTRACHEAL INTUBATION [None]
  - EPILEPSY [None]
  - HEPATIC ENZYME INCREASED [None]
  - HYPOTENSION [None]
  - INTRACRANIAL PRESSURE INCREASED [None]
  - LIVER TRANSPLANT [None]
  - MENINGITIS [None]
  - MENTAL STATUS CHANGES [None]
  - MYOCLONUS [None]
  - PLASMAPHERESIS [None]
  - PNEUMONIA [None]
  - RENAL FAILURE ACUTE [None]
  - RESUSCITATION [None]
  - TACHYCARDIA [None]
  - TREMOR [None]
